FAERS Safety Report 18593317 (Version 1)
Quarter: 2020Q4

REPORT INFORMATION
  Report Type: Spontaneous
  Country: US (occurrence: US)
  Receive Date: 20201209
  Receipt Date: 20201209
  Transmission Date: 20210114
  Serious: Yes (Other)
  Sender: FDA-Public Use
  Company Number: US-HIKMA PHARMACEUTICALS USA INC.-US-H14001-20-05437

PATIENT
  Sex: Female

DRUGS (2)
  1. DEXAMETHASONE. [Suspect]
     Active Substance: DEXAMETHASONE
     Indication: PRODUCT USED FOR UNKNOWN INDICATION
     Route: 065
  2. TUKYSA [Suspect]
     Active Substance: TUCATINIB
     Indication: BREAST CANCER
     Route: 065

REACTIONS (10)
  - Hyponatraemia [Unknown]
  - Weight increased [Unknown]
  - Fall [Unknown]
  - Loss of consciousness [Unknown]
  - Diarrhoea [Unknown]
  - Balance disorder [Unknown]
  - Noninfective encephalitis [Unknown]
  - Insomnia [Unknown]
  - Depressed mood [Unknown]
  - Joint injury [Unknown]
